FAERS Safety Report 18307295 (Version 2)
Quarter: 2020Q4

REPORT INFORMATION
  Report Type: Spontaneous
  Country: US (occurrence: US)
  Receive Date: 20200924
  Receipt Date: 20201020
  Transmission Date: 20210113
  Serious: Yes (Other)
  Sender: FDA-Public Use
  Company Number: US-SA-2020SA260680

PATIENT

DRUGS (8)
  1. AMLODIPINE [Concomitant]
     Active Substance: AMLODIPINE BESYLATE
     Dosage: 10 MG, QD
     Route: 048
     Dates: start: 20191206
  2. ZANTAC [Suspect]
     Active Substance: RANITIDINE HYDROCHLORIDE
     Indication: DYSPEPSIA
     Dosage: 150 MG, QD,OVER THE COUNTER
     Dates: start: 199601, end: 201910
  3. POLYETHYLENE GLYCOL 4000 [Concomitant]
     Active Substance: POLYETHYLENE GLYCOL 4000
     Dosage: UNK
     Dates: start: 20190813, end: 20190909
  4. ZANTAC [Suspect]
     Active Substance: RANITIDINE HYDROCHLORIDE
     Indication: GASTROOESOPHAGEAL REFLUX DISEASE
  5. ZANTAC [Suspect]
     Active Substance: RANITIDINE HYDROCHLORIDE
     Indication: DYSGEUSIA
  6. HYDROCHLOROTHIAZIDE. [Concomitant]
     Active Substance: HYDROCHLOROTHIAZIDE
     Dosage: UNK UNK, QD
     Route: 048
     Dates: end: 20190909
  7. RANITIDINE. [Concomitant]
     Active Substance: RANITIDINE
     Indication: GASTROOESOPHAGEAL REFLUX DISEASE
     Dosage: 1 DF, BID
     Route: 048
     Dates: start: 20190813, end: 20190909
  8. AMLODIPINE [Concomitant]
     Active Substance: AMLODIPINE BESYLATE
     Indication: HYPERTENSION
     Dosage: 10 MG, QD
     Route: 048
     Dates: end: 20191114

REACTIONS (13)
  - Metastases to liver [Unknown]
  - Oesophageal adenocarcinoma stage IV [Unknown]
  - Cholecystitis acute [Unknown]
  - Vomiting [Unknown]
  - Pulmonary embolism [Unknown]
  - Pyrexia [Unknown]
  - Hypokalaemia [Unknown]
  - Systemic inflammatory response syndrome [Unknown]
  - Obesity [Unknown]
  - Nausea [Unknown]
  - Sepsis [Unknown]
  - Anaemia [Unknown]
  - Hepatic mass [Unknown]

NARRATIVE: CASE EVENT DATE: 20190701
